FAERS Safety Report 16153734 (Version 1)
Quarter: 2019Q2

REPORT INFORMATION
  Report Type: Spontaneous
  Country: US (occurrence: US)
  Receive Date: 20190228
  Receipt Date: 20190228
  Transmission Date: 20190711
  Serious: No
  Sender: FDA-Public Use
  Company Number: None

PATIENT
  Sex: Female
  Weight: 85.8 kg

DRUGS (1)
  1. DOCETAXEL. [Suspect]
     Active Substance: DOCETAXEL
     Indication: OVARIAN CANCER RECURRENT
     Dates: start: 20190114, end: 20190128

REACTIONS (5)
  - Skin ulcer [None]
  - Localised oedema [None]
  - Fatigue [None]
  - Oedema [None]
  - Skin lesion [None]

NARRATIVE: CASE EVENT DATE: 20190122
